FAERS Safety Report 6673421-4 (Version None)
Quarter: 2010Q2

REPORT INFORMATION
  Report Type: 
  Country: None (occurrence: None)
  Receive Date: 20100408
  Receipt Date: 20100329
  Transmission Date: 20101027
  Serious: Yes (Other)
  Sender: FDA-Public Use
  Company Number: FR-PFIZER INC-2010039358

PATIENT
  Sex: Male

DRUGS (2)
  1. ZOLOFT [Suspect]
     Indication: DEPRESSION
     Dosage: UNK
  2. PREVISCAN [Concomitant]
     Indication: HAEMORRHAGE PROPHYLAXIS

REACTIONS (1)
  - INTERNATIONAL NORMALISED RATIO DECREASED [None]
